FAERS Safety Report 10894053 (Version 1)
Quarter: 2015Q1

REPORT INFORMATION
  Report Type: Spontaneous
  Country: US (occurrence: US)
  Receive Date: 20150306
  Receipt Date: 20150306
  Transmission Date: 20150721
  Serious: Yes (Hospitalization, Other)
  Sender: FDA-Public Use
  Company Number: US-B.I. PHARMACEUTICALS,INC./RIDGEFIELD-2015-BI-10634GD

PATIENT
  Age: 60 Year
  Sex: Female

DRUGS (8)
  1. BUPRENORPHINE W/NALOXONE [Suspect]
     Active Substance: BUPRENORPHINE HYDROCHLORIDE\NALOXONE HYDROCHLORIDE
     Indication: DRUG DEPENDENCE
     Dosage: TWO 8/2 MG STRIPS PER DAY
     Route: 060
  2. LISINOPRIL. [Concomitant]
     Active Substance: LISINOPRIL
     Indication: HYPERTENSION
     Dosage: 10 MG
     Route: 065
  3. METOPROLOL [Concomitant]
     Active Substance: METOPROLOL
     Indication: HYPERTENSION
     Dosage: 100 MG
     Route: 065
  4. CATAPRES [Suspect]
     Active Substance: CLONIDINE HYDROCHLORIDE
     Indication: HYPERTENSION
     Dosage: 0.4 MG
     Route: 065
  5. BUPRENORPHINE W/NALOXONE [Suspect]
     Active Substance: BUPRENORPHINE HYDROCHLORIDE\NALOXONE HYDROCHLORIDE
     Dosage: 8/2 MG STRIPS 3 TIMES DAILY
     Route: 060
  6. AMITRIPTYLINE [Suspect]
     Active Substance: AMITRIPTYLINE
     Indication: DEPRESSION
     Dosage: 100 MG
     Route: 065
  7. CATAPRES [Suspect]
     Active Substance: CLONIDINE HYDROCHLORIDE
     Route: 048
  8. AMITRIPTYLINE [Suspect]
     Active Substance: AMITRIPTYLINE
     Route: 048

REACTIONS (19)
  - Hypertensive crisis [Unknown]
  - Mental status changes [Unknown]
  - Loss of consciousness [Unknown]
  - Headache [Unknown]
  - Cerebellar atrophy [Unknown]
  - Nausea [Unknown]
  - Acute kidney injury [Unknown]
  - Hypertensive crisis [Unknown]
  - Hallucination [Unknown]
  - Vomiting [Unknown]
  - Fall [Unknown]
  - Acute kidney injury [Unknown]
  - Withdrawal hypertension [Unknown]
  - Encephalomalacia [Unknown]
  - Drug abuse [Unknown]
  - Lacunar infarction [Unknown]
  - Cerebral atrophy [Unknown]
  - Headache [Unknown]
  - Drug dependence [Unknown]

NARRATIVE: CASE EVENT DATE: 201105
